FAERS Safety Report 19192091 (Version 1)
Quarter: 2021Q2

REPORT INFORMATION
  Report Type: Spontaneous
  Country: FI (occurrence: FI)
  Receive Date: 20210429
  Receipt Date: 20210429
  Transmission Date: 20210717
  Serious: Yes (Other)
  Sender: FDA-Public Use
  Company Number: FI-TEVA-2021-FI-1904917

PATIENT
  Age: 82 Year
  Sex: Male

DRUGS (9)
  1. COMIRNATY [Suspect]
     Active Substance: TOZINAMERAN
     Dosage: 1,DF,X1
     Dates: start: 20210223, end: 20210223
  2. THYROXIN [Concomitant]
     Active Substance: LEVOTHYROXINE
  3. CANDESARTAN. [Concomitant]
     Active Substance: CANDESARTAN
  4. PRIMASPAN [Concomitant]
     Active Substance: ASPIRIN
  5. PRAVASTATIN. [Suspect]
     Active Substance: PRAVASTATIN
     Route: 065
  6. AMLODIPINE [Concomitant]
     Active Substance: AMLODIPINE BESYLATE
  7. ORMOX [Concomitant]
  8. EZETIMIBE. [Concomitant]
     Active Substance: EZETIMIBE
  9. BISOPROLOL [Concomitant]
     Active Substance: BISOPROLOL

REACTIONS (2)
  - Hallucination, visual [Unknown]
  - Blood glucose increased [Unknown]

NARRATIVE: CASE EVENT DATE: 20210305
